FAERS Safety Report 7833409-4 (Version None)
Quarter: 2011Q4

REPORT INFORMATION
  Report Type: 
  Country: None (occurrence: None)
  Receive Date: 20111024
  Receipt Date: 20111019
  Transmission Date: 20120403
  Serious: Yes (Death, Other)
  Sender: FDA-Public Use
  Company Number: GB-PFIZER INC-2011172985

PATIENT
  Age: 65 Year
  Sex: Male

DRUGS (2)
  1. EFFEXOR XR [Suspect]
     Dosage: 75 MG, 2X/DAY
  2. EFFEXOR XR [Suspect]
     Dosage: 75 MG, 4X/DAY

REACTIONS (4)
  - LEG AMPUTATION [None]
  - PSYCHOTIC BEHAVIOUR [None]
  - THINKING ABNORMAL [None]
  - EXSANGUINATION [None]
